FAERS Safety Report 19165166 (Version 1)
Quarter: 2021Q2

REPORT INFORMATION
  Report Type: Spontaneous
  Country: US (occurrence: US)
  Receive Date: 20210421
  Receipt Date: 20210421
  Transmission Date: 20210717
  Serious: No
  Sender: FDA-Public Use
  Company Number: US-MATRIXX INITIATIVES, INC.-2109588

PATIENT
  Age: 20 Year
  Sex: Male
  Weight: 86.36 kg

DRUGS (1)
  1. ZICAM COLD REMEDY NASAL SPRAY [Suspect]
     Active Substance: HOMEOPATHICS
     Indication: NASOPHARYNGITIS
     Route: 045
     Dates: start: 20210418

REACTIONS (1)
  - Ageusia [None]
